FAERS Safety Report 4303334-4 (Version None)
Quarter: 2004Q1

REPORT INFORMATION
  Report Type: 
  Country: None (occurrence: None)
  Receive Date: 20040223
  Receipt Date: 20030421
  Transmission Date: 20041129
  Serious: Yes (Hospitalization, Other)
  Sender: FDA-Public Use
  Company Number: KII-2003-0007131

PATIENT
  Age: 42 Year
  Sex: Female

DRUGS (5)
  1. MORPHINE SULFATE [Suspect]
     Indication: PAIN
     Dosage: 30 MG, QID, ORAL
     Route: 048
  2. NEURONTIN [Suspect]
     Indication: DRUG USE FOR UNKNOWN INDICATION
     Dosage: 300 MG, SEE TEXT, ORAL
     Route: 048
  3. CLONAZEPAM [Suspect]
     Indication: DRUG USE FOR UNKNOWN INDICATION
     Dosage: 0.5 MG, QID, ORAL
     Route: 048
  4. BENADRYL [Suspect]
     Indication: PRURITUS
     Dosage: QID, ORAL
     Route: 048
  5. ACETYLSALICYLIC ACID (ACETYLSALICYCLIC ACID) [Suspect]
     Indication: DRUG USE FOR UNKNOWN INDICATION

REACTIONS (15)
  - BLOOD POTASSIUM DECREASED [None]
  - BLOOD UREA INCREASED [None]
  - CHROMATURIA [None]
  - CONFUSIONAL STATE [None]
  - DEPRESSED LEVEL OF CONSCIOUSNESS [None]
  - DYSARTHRIA [None]
  - HYPOTENSION [None]
  - HYPOXIA [None]
  - LETHARGY [None]
  - MEDICATION ERROR [None]
  - MYDRIASIS [None]
  - NON-CARDIOGENIC PULMONARY OEDEMA [None]
  - PNEUMONIA [None]
  - PRURITUS [None]
  - TACHYPNOEA [None]
